FAERS Safety Report 10740749 (Version 1)
Quarter: 2015Q1

REPORT INFORMATION
  Report Type: Spontaneous
  Country: BR (occurrence: BR)
  Receive Date: 20150127
  Receipt Date: 20150127
  Transmission Date: 20150721
  Serious: Yes (Hospitalization, Other)
  Sender: FDA-Public Use
  Company Number: BR-ROCHE-1523214

PATIENT
  Age: 63 Year
  Sex: Male

DRUGS (4)
  1. FOLINIC ACID [Suspect]
     Active Substance: LEUCOVORIN
     Indication: GASTROINTESTINAL NEOPLASM
     Route: 065
     Dates: start: 201009
  2. FLUOROURACIL. [Suspect]
     Active Substance: FLUOROURACIL
     Indication: GASTROINTESTINAL NEOPLASM
     Route: 065
     Dates: start: 201009
  3. AVASTIN [Suspect]
     Active Substance: BEVACIZUMAB
     Indication: GASTROINTESTINAL NEOPLASM
     Route: 065
     Dates: start: 201009
  4. OXALIPLATIN. [Suspect]
     Active Substance: OXALIPLATIN
     Indication: GASTROINTESTINAL NEOPLASM
     Route: 065
     Dates: start: 201009

REACTIONS (8)
  - Venous thrombosis [Unknown]
  - Diarrhoea [Unknown]
  - Neuropathy peripheral [Unknown]
  - Asthenia [Unknown]
  - Thrombocytosis [Unknown]
  - Disease progression [Recovered/Resolved]
  - Therapy responder [Unknown]
  - Blood pressure increased [Unknown]
